FAERS Safety Report 4571146-2 (Version None)
Quarter: 2005Q1

REPORT INFORMATION
  Report Type: 
  Country: None (occurrence: None)
  Receive Date: 20050202
  Receipt Date: 20050120
  Transmission Date: 20050727
  Serious: Yes (Death, Hospitalization)
  Sender: FDA-Public Use
  Company Number: 2005013388

PATIENT
  Age: 70 Year
  Sex: Male

DRUGS (8)
  1. CELEBREX [Suspect]
     Indication: OSTEOARTHRITIS
     Dosage: 200 MG (200 MG, 1 IN 1 D), ORAL
     Route: 048
     Dates: start: 20041018, end: 20041227
  2. GLIMEPIRIDE [Concomitant]
  3. LISINOPRIL [Concomitant]
  4. AMLODIPINE BESYLATE [Concomitant]
  5. ATORVASTATIN [Concomitant]
  6. ACARBOSE [Concomitant]
  7. ACETYLSALICYLIC ACID [Concomitant]
  8. ISOSORBIDE MONONITRATE [Concomitant]

REACTIONS (3)
  - CEREBROVASCULAR ACCIDENT [None]
  - HEMIPLEGIA [None]
  - TREATMENT NONCOMPLIANCE [None]
